FAERS Safety Report 20976842 (Version 1)
Quarter: 2022Q2

REPORT INFORMATION
  Report Type: Spontaneous
  Country: JP (occurrence: JP)
  Receive Date: 20220617
  Receipt Date: 20220617
  Transmission Date: 20220721
  Serious: Yes (Other)
  Sender: FDA-Public Use
  Company Number: JP-BAXTER-2022BAX012363

PATIENT
  Age: 4 Decade
  Sex: Female

DRUGS (3)
  1. SORBITOL [Suspect]
     Active Substance: SORBITOL
     Dosage: UNK
     Route: 065
     Dates: start: 2018, end: 2018
  2. CALCIUM CHLORIDE\POTASSIUM CHLORIDE\SODIUM CHLORIDE\SODIUM LACTATE [Suspect]
     Active Substance: CALCIUM CHLORIDE\POTASSIUM CHLORIDE\SODIUM CHLORIDE\SODIUM LACTATE
     Dosage: UNK
     Route: 065
     Dates: start: 2018
  3. CEFAZOLIN SODIUM [Concomitant]
     Active Substance: CEFAZOLIN SODIUM
     Route: 065

REACTIONS (4)
  - Anaphylactic shock [Unknown]
  - Blood pressure abnormal [Unknown]
  - Erythema [Recovered/Resolved]
  - Wrong product administered [Unknown]

NARRATIVE: CASE EVENT DATE: 20180101
